FAERS Safety Report 25336837 (Version 1)
Quarter: 2025Q2

REPORT INFORMATION
  Report Type: Report from Study
  Country: SA (occurrence: SA)
  Receive Date: 20250520
  Receipt Date: 20250520
  Transmission Date: 20250717
  Serious: Yes (Other)
  Sender: NOVARTIS
  Company Number: SA-002147023-NVSC2025SA078768

PATIENT
  Age: 58 Year
  Sex: Female

DRUGS (1)
  1. LEQVIO [Suspect]
     Active Substance: INCLISIRAN SODIUM
     Indication: Hypercholesterolaemia
     Route: 065
     Dates: start: 20240207

REACTIONS (13)
  - Injection site hypersensitivity [Unknown]
  - Injection site erythema [Unknown]
  - Injection site pain [Unknown]
  - Joint noise [Unknown]
  - Pollakiuria [Unknown]
  - Skin exfoliation [Unknown]
  - Injection site swelling [Unknown]
  - Skin discolouration [Unknown]
  - Fatigue [Unknown]
  - Bone pain [Unknown]
  - Arthralgia [Unknown]
  - Injection site injury [Unknown]
  - Concomitant disease aggravated [Unknown]

NARRATIVE: CASE EVENT DATE: 20250507
